FAERS Safety Report 6195595-4 (Version None)
Quarter: 2009Q2

REPORT INFORMATION
  Report Type: 
  Country: None (occurrence: None)
  Receive Date: 20090519
  Receipt Date: 20090508
  Transmission Date: 20091009
  Serious: Yes (Death)
  Sender: FDA-Public Use
  Company Number: PH-BAXTER-2009BH008367

PATIENT
  Age: 80 Year
  Sex: Female

DRUGS (2)
  1. DIANEAL [Suspect]
     Indication: RENAL FAILURE CHRONIC
     Route: 033
     Dates: start: 20080916
  2. DIANEAL [Suspect]
     Route: 033
     Dates: start: 20080916

REACTIONS (1)
  - MULTI-ORGAN FAILURE [None]
